FAERS Safety Report 5910889-2 (Version None)
Quarter: 2008Q4

REPORT INFORMATION
  Report Type: 
  Country: None (occurrence: None)
  Receive Date: 20081007
  Receipt Date: 20080625
  Transmission Date: 20090506
  Serious: No
  Sender: FDA-Public Use
  Company Number: US-ASTRAZENECA-2008UW12788

PATIENT
  Age: 77 Year
  Sex: Female
  Weight: 89.4 kg

DRUGS (8)
  1. ARIMIDEX [Suspect]
     Indication: BREAST CANCER
     Route: 048
     Dates: start: 20051101, end: 20080612
  2. VYTORIN [Concomitant]
     Dosage: VYTORIN 10/40
  3. OMEPRAZOLE [Concomitant]
     Route: 048
  4. SERTRALINE [Concomitant]
  5. LIBRAX [Concomitant]
  6. CENTRUM [Concomitant]
  7. CLARINEX [Concomitant]
  8. CALTRATE [Concomitant]

REACTIONS (4)
  - JOINT SWELLING [None]
  - MUSCLE SPASMS [None]
  - OEDEMA PERIPHERAL [None]
  - WEIGHT INCREASED [None]
